FAERS Safety Report 20071536 (Version 5)
Quarter: 2022Q1

REPORT INFORMATION
  Report Type: Report from Study
  Country: BR (occurrence: BR)
  Receive Date: 20211115
  Receipt Date: 20220121
  Transmission Date: 20220423
  Serious: Yes (Life-Threatening, Other)
  Sender: FDA-Public Use
  Company Number: BR-NOVARTISPH-NVSC2019BR052690

PATIENT
  Age: 74 Year
  Sex: Male
  Weight: 87.3 kg

DRUGS (22)
  1. ASCIMINIB [Suspect]
     Active Substance: ASCIMINIB
     Indication: Chronic myeloid leukaemia
     Dosage: 400 MG (TWICE DAILY, 5 CAPSULES)
     Route: 048
     Dates: start: 20191108, end: 20191112
  2. ASCIMINIB [Suspect]
     Active Substance: ASCIMINIB
     Dosage: 400 MG
     Route: 048
     Dates: start: 20191203
  3. ASCIMINIB [Suspect]
     Active Substance: ASCIMINIB
     Dosage: 400 MG (TWICE DAILY, 5 CAPSULES)
     Route: 048
     Dates: start: 20191210, end: 20200120
  4. ASCIMINIB [Suspect]
     Active Substance: ASCIMINIB
     Dosage: 200 MG, BID (5 CAPSULES, TWICE DAILY)
     Route: 048
     Dates: start: 20200210
  5. ASCIMINIB [Suspect]
     Active Substance: ASCIMINIB
     Dosage: 120 MG, BID
     Route: 048
  6. ASCIMINIB [Suspect]
     Active Substance: ASCIMINIB
     Dosage: 400 MG, BID
     Route: 048
     Dates: start: 20200302
  7. ASCIMINIB [Suspect]
     Active Substance: ASCIMINIB
     Dosage: 400 MG (3 CAPSULES, TWICE DAILY)
     Route: 048
     Dates: start: 20200310, end: 20200316
  8. ASCIMINIB [Suspect]
     Active Substance: ASCIMINIB
     Dosage: 160 MG (2 CAPSULES, TWICE DAILY)
     Route: 048
     Dates: start: 20200423, end: 20200528
  9. ASCIMINIB [Suspect]
     Active Substance: ASCIMINIB
     Dosage: 80 MG, BID
     Route: 048
     Dates: start: 20200618
  10. ASCIMINIB [Suspect]
     Active Substance: ASCIMINIB
     Dosage: 2 DF, BID
     Route: 048
     Dates: start: 20200915
  11. ASCIMINIB [Suspect]
     Active Substance: ASCIMINIB
     Dosage: 5 DF, BID (3+2)
     Route: 048
     Dates: start: 20210406
  12. ASCIMINIB [Suspect]
     Active Substance: ASCIMINIB
     Dosage: 3 DF, BID
     Route: 048
     Dates: start: 20210615
  13. ASCIMINIB [Suspect]
     Active Substance: ASCIMINIB
     Dosage: 320 MG
     Route: 048
     Dates: start: 20210701, end: 20210914
  14. ASCIMINIB [Suspect]
     Active Substance: ASCIMINIB
     Dosage: 320 MG, QD (PER DAY)
     Route: 065
  15. ASCIMINIB [Suspect]
     Active Substance: ASCIMINIB
     Dosage: 80 MG, QD (PER DAY)
     Route: 065
  16. IMATINIB [Suspect]
     Active Substance: IMATINIB
     Indication: Product used for unknown indication
     Dosage: 400 MG, QD
     Route: 065
     Dates: start: 20210914
  17. PONATINIB [Suspect]
     Active Substance: PONATINIB
     Indication: Product used for unknown indication
     Dosage: UNK
     Route: 065
  18. BISOPROLOL [Concomitant]
     Active Substance: BISOPROLOL
     Indication: Pulmonary hypertension
     Dosage: UNK
     Route: 065
  19. LOSARTAN [Concomitant]
     Active Substance: LOSARTAN
     Indication: Pulmonary hypertension
     Dosage: UNK
     Route: 065
  20. FUROSEMIDE [Concomitant]
     Active Substance: FUROSEMIDE
     Indication: Pulmonary hypertension
     Dosage: UNK
     Route: 065
  21. LEVOTHYROXINE [Concomitant]
     Active Substance: LEVOTHYROXINE
     Indication: Hypothyroidism
     Dosage: UNK
     Route: 065
  22. PANTOPRAZOLE [Concomitant]
     Active Substance: PANTOPRAZOLE
     Indication: Gastric disorder
     Dosage: UNK
     Route: 065

REACTIONS (18)
  - Toxicity to various agents [Unknown]
  - Neutrophil count decreased [Recovered/Resolved]
  - Platelet count decreased [Recovered/Resolved]
  - Platelet count decreased [Recovered/Resolved]
  - Platelet count decreased [Recovered/Resolved]
  - Eosinophilia [Recovering/Resolving]
  - Monocytosis [Recovering/Resolving]
  - Blood bilirubin increased [Recovered/Resolved]
  - Blood bilirubin increased [Recovered/Resolved]
  - Neutrophil count decreased [Recovered/Resolved]
  - Neutrophil count decreased [Recovered/Resolved]
  - Platelet count decreased [Recovered/Resolved]
  - Neutrophil count decreased [Recovered/Resolved]
  - Lymphocyte count abnormal [Unknown]
  - Splenomegaly [Not Recovered/Not Resolved]
  - Constipation [Recovered/Resolved]
  - Loss of therapeutic response [Unknown]
  - White blood cell disorder [Recovered/Resolved]

NARRATIVE: CASE EVENT DATE: 20191113
